FAERS Safety Report 23345513 (Version 1)
Quarter: 2023Q4

REPORT INFORMATION
  Report Type: Spontaneous
  Country: IL (occurrence: IL)
  Receive Date: 20231228
  Receipt Date: 20231228
  Transmission Date: 20240110
  Serious: Yes (Other)
  Sender: FDA-Public Use
  Company Number: IL-IPCA LABORATORIES LIMITED-IPC-2023-IL-002305

PATIENT

DRUGS (1)
  1. HYDROXYCHLOROQUINE [Suspect]
     Active Substance: HYDROXYCHLOROQUINE
     Indication: Systemic lupus erythematosus
     Dosage: UNK
     Route: 065

REACTIONS (5)
  - Chronic inflammatory demyelinating polyradiculoneuropathy [Recovering/Resolving]
  - Papilloedema [Recovering/Resolving]
  - Visual impairment [Recovering/Resolving]
  - Toxicity to various agents [Recovering/Resolving]
  - Myopathy [Recovering/Resolving]
